FAERS Safety Report 5424640-6 (Version None)
Quarter: 2007Q3

REPORT INFORMATION
  Report Type: 
  Country: None (occurrence: None)
  Receive Date: 20070731
  Receipt Date: 20070605
  Transmission Date: 20080115
  Serious: No
  Sender: FDA-Public Use
  Company Number: US200704000517

PATIENT
  Age: 73 Year
  Sex: Male
  Weight: 92.5 kg

DRUGS (16)
  1. BYETTA [Suspect]
     Indication: TYPE 2 DIABETES MELLITUS
     Dosage: 5 UG, 2/D, SUBCUTANEOUS ; 5 UG, 2/D, SUBCUTANEOUS
     Route: 058
     Dates: start: 20061201, end: 20070101
  2. BYETTA [Suspect]
     Indication: TYPE 2 DIABETES MELLITUS
     Dosage: 5 UG, 2/D, SUBCUTANEOUS ; 5 UG, 2/D, SUBCUTANEOUS
     Route: 058
     Dates: start: 20070214, end: 20070222
  3. BYETTA [Suspect]
     Indication: TYPE 2 DIABETES MELLITUS
     Dosage: 5 UG, 2/D, SUBCUTANEOUS ; 5 UG, 2/D, SUBCUTANEOUS
     Route: 058
     Dates: start: 20070101
  4. EXENATIDE 5MCG PEN, DISPOSABLE DEVICE (EXENATIDE PEN (5MCG)) PEN,DISPO [Concomitant]
  5. METFORMIN HCL [Concomitant]
  6. VALSARTAN [Concomitant]
  7. ATORVASTATIN CALCIUM [Concomitant]
  8. METOPROLOL TARTRATE [Concomitant]
  9. NORVASC [Concomitant]
  10. PLAVIX [Concomitant]
  11. GEMFIBROZIL [Concomitant]
  12. ZETIA [Concomitant]
  13. ISOSORBIDE (ISOSORBIDE) [Concomitant]
  14. PAROXETINE [Concomitant]
  15. OMEPRAZOLE [Concomitant]
  16. ASPIRIN [Concomitant]

REACTIONS (5)
  - ERYTHEMA [None]
  - LIP SWELLING [None]
  - MALAISE [None]
  - PRURITUS [None]
  - SWELLING FACE [None]
